FAERS Safety Report 12975519 (Version 5)
Quarter: 2017Q2

REPORT INFORMATION
  Report Type: Report from Study
  Country: US (occurrence: US)
  Receive Date: 20161125
  Receipt Date: 20170508
  Transmission Date: 20170830
  Serious: Yes (Death, Hospitalization, Other)
  Sender: FDA-Public Use
  Company Number: US-009507513-1611USA012107

PATIENT
  Age: 82 Year
  Sex: Male
  Weight: 84.5 kg

DRUGS (3)
  1. KEYTRUDA [Suspect]
     Active Substance: PEMBROLIZUMAB
     Indication: CHOLANGIOCARCINOMA
  2. KEYTRUDA [Suspect]
     Active Substance: PEMBROLIZUMAB
     Indication: PANCREATIC CARCINOMA METASTATIC
     Dosage: 166.8 MG EVERY 21 DAYS
     Route: 042
     Dates: start: 20160802, end: 20160823
  3. KEYTRUDA [Suspect]
     Active Substance: PEMBROLIZUMAB
     Indication: BILE DUCT CANCER

REACTIONS (10)
  - Malignant neoplasm progression [Fatal]
  - Angina pectoris [Recovered/Resolved]
  - International normalised ratio increased [Unknown]
  - Troponin I increased [Unknown]
  - Cerebral infarction [Unknown]
  - Product use in unapproved indication [Unknown]
  - Anaemia [Recovered/Resolved]
  - Left ventricular dysfunction [Unknown]
  - Escherichia sepsis [Not Recovered/Not Resolved]
  - Ejection fraction abnormal [Unknown]

NARRATIVE: CASE EVENT DATE: 20160802
